FAERS Safety Report 4976979-6 (Version None)
Quarter: 2006Q2

REPORT INFORMATION
  Report Type: 
  Country: None (occurrence: None)
  Receive Date: 20060412
  Receipt Date: 20060330
  Transmission Date: 20061013
  Serious: Yes (Other)
  Sender: FDA-Public Use
  Company Number: USA-2006-0023926

PATIENT
  Age: 83 Year
  Sex: Male

DRUGS (8)
  1. MS CONTIN [Suspect]
     Indication: PAIN
     Dosage: 30 MG,TID
  2. MORPHINE SULFATE [Suspect]
     Indication: PAIN
     Dosage: 15
  3. TOPROL-XL [Concomitant]
  4. COUMADIN [Concomitant]
  5. ENALAPRIL MALEATE [Concomitant]
  6. LASIX [Concomitant]
  7. ISOSORBIDE [Concomitant]
  8. POTASSIUM CHLORIDE [Concomitant]

REACTIONS (4)
  - CARDIAC FAILURE CONGESTIVE [None]
  - CARDIAC PACEMAKER INSERTION [None]
  - DYSPNOEA [None]
  - HEART RATE DECREASED [None]
